FAERS Safety Report 5251804-7 (Version None)
Quarter: 2007Q1

REPORT INFORMATION
  Report Type: 
  Country: None (occurrence: None)
  Receive Date: 20070228
  Receipt Date: 20070219
  Transmission Date: 20070707
  Serious: Yes (Other)
  Sender: FDA-Public Use
  Company Number: SE-PFIZER INC-2007013500

PATIENT
  Age: 61 Year
  Sex: Female

DRUGS (1)
  1. CELEBRA [Suspect]
     Indication: ANKYLOSING SPONDYLITIS

REACTIONS (1)
  - PAPILLOEDEMA [None]
